FAERS Safety Report 6128439-7 (Version None)
Quarter: 2009Q1

REPORT INFORMATION
  Report Type: 
  Country: None (occurrence: None)
  Receive Date: 20090323
  Receipt Date: 20090312
  Transmission Date: 20090719
  Serious: Yes (Other)
  Sender: FDA-Public Use
  Company Number: US-JNJFOC-20090303616

PATIENT
  Sex: Male
  Weight: 71.67 kg

DRUGS (3)
  1. REMICADE [Suspect]
     Dosage: 7 INFUSIONS (10 MG/KG)
     Route: 042
  2. REMICADE [Suspect]
     Dosage: 31 INFUSIONS (5 MG/KG)
     Route: 042
  3. REMICADE [Suspect]
     Indication: CROHN'S DISEASE
     Dosage: 10 INFUSIONS ON UNSPECIFIED DATES PRIOR TO BASELINE
     Route: 042

REACTIONS (1)
  - BASAL CELL CARCINOMA [None]
